FAERS Safety Report 5856455-9 (Version None)
Quarter: 2008Q3

REPORT INFORMATION
  Report Type: 
  Country: None (occurrence: None)
  Receive Date: 20080825
  Receipt Date: 20080604
  Transmission Date: 20090109
  Serious: No
  Sender: FDA-Public Use
  Company Number: A0726583A

PATIENT
  Age: 52 Year
  Sex: Female
  Weight: 70 kg

DRUGS (1)
  1. VERAMYST [Suspect]
     Dosage: 4SPR PER DAY
     Route: 045
     Dates: start: 20080321

REACTIONS (4)
  - DRUG INEFFECTIVE [None]
  - HEADACHE [None]
  - OCULAR HYPERAEMIA [None]
  - STOMACH DISCOMFORT [None]
